FAERS Safety Report 15377303 (Version 1)
Quarter: 2018Q3

REPORT INFORMATION
  Report Type: Spontaneous
  Country: US (occurrence: US)
  Receive Date: 20180913
  Receipt Date: 20180913
  Transmission Date: 20181010
  Serious: Yes (Hospitalization)
  Sender: FDA-Public Use
  Company Number: US-PFIZER INC-2018367911

PATIENT
  Age: 67 Year
  Sex: Female
  Weight: 77 kg

DRUGS (1)
  1. IBRANCE [Suspect]
     Active Substance: PALBOCICLIB
     Indication: BREAST CANCER
     Dosage: 125 MG, CYCLIC, ^DAILY FOR 21 DAYS, AND THEN OFF FOR 7 DAYS^
     Route: 048
     Dates: start: 201808, end: 20180803

REACTIONS (7)
  - Loss of personal independence in daily activities [Unknown]
  - Chills [Unknown]
  - Malaise [Unknown]
  - Sepsis [Unknown]
  - Peripheral swelling [Unknown]
  - Wound infection [Unknown]
  - Gait disturbance [Unknown]

NARRATIVE: CASE EVENT DATE: 2018
